FAERS Safety Report 5581243-0 (Version None)
Quarter: 2007Q4

REPORT INFORMATION
  Report Type: 
  Country: None (occurrence: None)
  Receive Date: 20071227
  Receipt Date: 20071217
  Transmission Date: 20080405
  Serious: Yes (Hospitalization)
  Sender: FDA-Public Use
  Company Number: 2007-169382-NL

PATIENT
  Age: 89 Year
  Sex: Female

DRUGS (7)
  1. MIRTAZAPINE [Suspect]
  2. ZOLPIDEM [Concomitant]
  3. PARAPSYLLIUM [Concomitant]
  4. ESOMEPRAZOLE [Concomitant]
  5. PREDNISOLONE [Concomitant]
  6. TRIMEBUTINE MALEATE [Concomitant]
  7. TETRAZEPAN [Concomitant]

REACTIONS (10)
  - ABNORMAL BEHAVIOUR [None]
  - ANXIETY [None]
  - DELIRIUM [None]
  - DISORIENTATION [None]
  - FALL [None]
  - HALLUCINATIONS, MIXED [None]
  - HYPOKALAEMIA [None]
  - HYPONATRAEMIA [None]
  - JOINT INJURY [None]
  - TREATMENT NONCOMPLIANCE [None]
